FAERS Safety Report 9288860 (Version 1)
Quarter: 2013Q2

REPORT INFORMATION
  Report Type: Other
  Country: US (occurrence: US)
  Receive Date: 20130514
  Receipt Date: 20130514
  Transmission Date: 20140414
  Serious: Yes (Hospitalization, Other)
  Sender: FDA-Public Use
  Company Number: US-FRI-1000044983

PATIENT
  Age: 88 Year
  Sex: Male

DRUGS (6)
  1. DILTIAZEM [Suspect]
     Dosage: 180 MG
  2. ASPIRIN [Concomitant]
     Dosage: 81 MG
  3. SIMVASTATIN [Concomitant]
     Dosage: 40 MG
  4. CARBIDOPA/LEVODOPA [Concomitant]
     Dosage: 25/100 MG
  5. METOLAZONE [Concomitant]
     Dosage: 5 MG
  6. TORSEMIDE [Concomitant]
     Dosage: 10 MG

REACTIONS (3)
  - Atrioventricular block complete [Recovered/Resolved]
  - Respiratory distress [Unknown]
  - Fluid overload [Unknown]
